FAERS Safety Report 12954871 (Version 2)
Quarter: 2017Q1

REPORT INFORMATION
  Report Type: Report from Study
  Country: GB (occurrence: GB)
  Receive Date: 20161118
  Receipt Date: 20170131
  Transmission Date: 20170428
  Serious: Yes (Death, Other)
  Sender: FDA-Public Use
  Company Number: PHFR2016GB009127

PATIENT
  Age: 30 Year
  Sex: Female
  Weight: 81 kg

DRUGS (1)
  1. TYKERB [Suspect]
     Active Substance: LAPATINIB DITOSYLATE
     Indication: BREAST CANCER METASTATIC
     Route: 065

REACTIONS (3)
  - Breast cancer metastatic [Fatal]
  - Malignant neoplasm progression [Fatal]
  - Drug ineffective [Unknown]

NARRATIVE: CASE EVENT DATE: 20161104
